FAERS Safety Report 17679690 (Version 4)
Quarter: 2020Q2

REPORT INFORMATION
  Report Type: Spontaneous
  Country: US (occurrence: US)
  Receive Date: 20200417
  Receipt Date: 20200501
  Transmission Date: 20200714
  Serious: Yes (Other)
  Sender: FDA-Public Use
  Company Number: US-TEVA-2020-US-1223120

PATIENT
  Sex: Male

DRUGS (1)
  1. FENTANYL. [Suspect]
     Active Substance: FENTANYL
     Route: 065

REACTIONS (4)
  - Drug dependence [Unknown]
  - Toxic encephalopathy [Unknown]
  - Overdose [Unknown]
  - Memory impairment [Unknown]
